FAERS Safety Report 6149419-1 (Version None)
Quarter: 2009Q2

REPORT INFORMATION
  Report Type: 
  Country: None (occurrence: None)
  Receive Date: 20090409
  Receipt Date: 20090402
  Transmission Date: 20091009
  Serious: Yes (Other)
  Sender: FDA-Public Use
  Company Number: US-BIOGENIDEC-2009BI010797

PATIENT
  Age: 47 Year
  Sex: Female
  Weight: 81 kg

DRUGS (1)
  1. TYSABRI [Suspect]
     Indication: MULTIPLE SCLEROSIS
     Route: 042
     Dates: start: 20080601

REACTIONS (2)
  - BRAIN NEOPLASM [None]
  - MAMMOGRAM ABNORMAL [None]
